FAERS Safety Report 23080892 (Version 1)
Quarter: 2023Q4

REPORT INFORMATION
  Report Type: Spontaneous
  Country: US (occurrence: None)
  Receive Date: 20231018
  Receipt Date: 20231018
  Transmission Date: 20240110
  Serious: Yes (Hospitalization)
  Sender: FDA-Public Use
  Company Number: None

PATIENT
  Age: 73 Year
  Sex: Male
  Weight: 91 kg

DRUGS (1)
  1. NIRMATRELVIR\RITONAVIR [Suspect]
     Active Substance: NIRMATRELVIR\RITONAVIR
     Dates: start: 20220210, end: 20220211

REACTIONS (11)
  - Diarrhoea [None]
  - Pruritus [None]
  - Rash [None]
  - Taste disorder [None]
  - Diarrhoea [None]
  - Vomiting [None]
  - Sinus pain [None]
  - Cough [None]
  - Pallor [None]
  - Therapy cessation [None]
  - Urticaria [None]

NARRATIVE: CASE EVENT DATE: 20230211
